FAERS Safety Report 8813703 (Version 2)
Quarter: 2013Q2

REPORT INFORMATION
  Report Type: Spontaneous
  Country: US (occurrence: US)
  Receive Date: 20120928
  Receipt Date: 20130607
  Transmission Date: 20140414
  Serious: No
  Sender: FDA-Public Use
  Company Number: US-009507513-1208USA005496

PATIENT
  Age: 54 Year
  Sex: Male
  Weight: 84.9 kg

DRUGS (8)
  1. VICTRELIS [Suspect]
     Dosage: 800 MG, 4 CAPSULES THREE TIMES A DAY EVERY 7-9 HOURS ON WEEK 5
     Route: 048
     Dates: start: 20120713, end: 20121227
  2. REBETOL [Suspect]
     Dosage: 600 MG, BID
     Route: 048
     Dates: start: 20120615, end: 20121227
  3. PEGASYS [Suspect]
     Dosage: 180 MICROGRAM, QW
     Route: 058
     Dates: start: 20120615, end: 20121221
  4. PROCRIT [Concomitant]
     Dosage: WEEKLY FOR 4 MONTHS
     Route: 058
     Dates: start: 20120811, end: 20121227
  5. FOLIC ACID [Concomitant]
     Dosage: 1 MG, QD
     Route: 048
     Dates: start: 20120808, end: 20121227
  6. PROCHLORPERAZINE [Concomitant]
     Dosage: 1-2 IN A WEEK, PRN
     Dates: start: 20120802, end: 20121227
  7. HEALTH CONCERNS MARROW PLUS [Concomitant]
     Dosage: UNK UNK, QD
     Dates: start: 20120812, end: 20121227
  8. CORDYCEPS [Concomitant]
     Dosage: UNK, QD
     Dates: start: 20120812, end: 20121227

REACTIONS (5)
  - Nausea [Unknown]
  - Fatigue [Unknown]
  - Dysgeusia [Unknown]
  - Anaemia [Recovered/Resolved]
  - Anaemia [Recovered/Resolved]
